FAERS Safety Report 4499752-4 (Version None)
Quarter: 2004Q4

REPORT INFORMATION
  Report Type: 
  Country: None (occurrence: None)
  Receive Date: 20041108
  Receipt Date: 20041025
  Transmission Date: 20050328
  Serious: No
  Sender: FDA-Public Use
  Company Number: 2004CG02189

PATIENT
  Age: 53 Year
  Sex: Female

DRUGS (2)
  1. TENORMIN [Suspect]
     Indication: HYPERTENSION
  2. AVLOCARDYL [Suspect]
     Indication: HYPERTENSION

REACTIONS (11)
  - ALOPECIA [None]
  - BLOOD PRESSURE INCREASED [None]
  - EYE PRURITUS [None]
  - HEADACHE [None]
  - HYPOKALAEMIA [None]
  - MACULAR DEGENERATION [None]
  - OEDEMA PERIPHERAL [None]
  - PHOTOPSIA [None]
  - PRURITUS [None]
  - STRESS SYMPTOMS [None]
  - VITREOUS DETACHMENT [None]
